FAERS Safety Report 16993607 (Version 1)
Quarter: 2019Q4

REPORT INFORMATION
  Report Type: Spontaneous
  Country: US (occurrence: US)
  Receive Date: 20191105
  Receipt Date: 20191105
  Transmission Date: 20200122
  Serious: No
  Sender: FDA-Public Use
  Company Number: US-SUN PHARMACEUTICAL INDUSTRIES LTD-2019R1-212737

PATIENT
  Sex: Male

DRUGS (1)
  1. LORATADINE+PSEUDOEPHIDRINE [Suspect]
     Active Substance: LORATADINE\PSEUDOEPHEDRINE SULFATE
     Indication: HYPERVIGILANCE
     Dosage: UNK
     Route: 065

REACTIONS (4)
  - Oral pain [Unknown]
  - Wrong technique in product usage process [Unknown]
  - Glossodynia [Unknown]
  - Off label use [Unknown]
